FAERS Safety Report 25471965 (Version 1)
Quarter: 2025Q2

REPORT INFORMATION
  Report Type: Spontaneous
  Country: US (occurrence: None)
  Receive Date: 20250624
  Receipt Date: 20250624
  Transmission Date: 20250717
  Serious: No
  Sender: ENCUBE ETHICALS
  Company Number: US-Encube-001975

PATIENT
  Sex: Female

DRUGS (1)
  1. PERMETHRIN [Suspect]
     Active Substance: PERMETHRIN
     Indication: Pruritus
     Dates: start: 20250612

REACTIONS (2)
  - Treatment failure [Unknown]
  - Product use issue [Unknown]

NARRATIVE: CASE EVENT DATE: 20250613
